FAERS Safety Report 13301483 (Version 1)
Quarter: 2017Q1

REPORT INFORMATION
  Report Type: Spontaneous
  Country: NL (occurrence: NL)
  Receive Date: 20170307
  Receipt Date: 20170307
  Transmission Date: 20170428
  Serious: Yes (Other)
  Sender: FDA-Public Use
  Company Number: PHHY2017NL030082

PATIENT
  Age: 47 Year
  Sex: Male

DRUGS (4)
  1. BECLOMETHASONE [Concomitant]
     Active Substance: BECLOMETHASONE
     Indication: ASTHMA
     Route: 065
  2. TIOTROPIUM [Concomitant]
     Active Substance: TIOTROPIUM
     Indication: ASTHMA
     Route: 065
  3. SALBUTAMOL [Suspect]
     Active Substance: ALBUTEROL
     Indication: ASTHMA
     Dosage: 100 UG,
     Route: 055
  4. DISULFIRAM. [Interacting]
     Active Substance: DISULFIRAM
     Indication: ALCOHOLISM
     Dosage: 500 MG, QW2
     Route: 048

REACTIONS (2)
  - Alcohol intolerance [Recovered/Resolved]
  - Drug interaction [Unknown]
